FAERS Safety Report 6497006-8 (Version None)
Quarter: 2009Q4

REPORT INFORMATION
  Report Type: 
  Country: None (occurrence: None)
  Receive Date: 20091215
  Receipt Date: 20081215
  Transmission Date: 20100525
  Serious: No
  Sender: FDA-Public Use
  Company Number: A0761355A

PATIENT
  Age: 23 Year
  Sex: Male
  Weight: 75 kg

DRUGS (1)
  1. AVODART [Suspect]
     Dates: start: 20080101

REACTIONS (2)
  - CRYING [None]
  - EMOTIONAL DISORDER [None]
